FAERS Safety Report 4294341-9 (Version None)
Quarter: 2004Q1

REPORT INFORMATION
  Report Type: 
  Country: None (occurrence: None)
  Receive Date: 20040211
  Receipt Date: 20031014
  Transmission Date: 20041129
  Serious: Yes (Hospitalization)
  Sender: FDA-Public Use
  Company Number: A0430088A

PATIENT
  Age: 54 Year
  Sex: Male

DRUGS (3)
  1. MELPHALAN INJECTION (MELPHALAN) [Suspect]
     Indication: MULTIPLE MYELOMA
     Dosage: 185 MG, INTRAVENOUS
     Route: 042
     Dates: start: 20030630
  2. THALIDOMIDE (THALIDOMIDE) [Suspect]
     Indication: MULTIPLE MYELOMA
     Dosage: 50 MG PER DAY, ORAL
     Route: 048
     Dates: start: 20030804, end: 20030906
  3. DEXAMETHASONE [Suspect]
     Indication: MULTIPLE MYELOMA
     Dosage: 20 MG MONTHLY, ORAL
     Route: 048
     Dates: start: 20030804

REACTIONS (2)
  - PNEUMONIA [None]
  - STEM CELL TRANSPLANT [None]
